FAERS Safety Report 23508606 (Version 2)
Quarter: 2024Q1

REPORT INFORMATION
  Report Type: Spontaneous
  Country: CN (occurrence: CN)
  Receive Date: 20240209
  Receipt Date: 20240214
  Transmission Date: 20240409
  Serious: Yes (Other)
  Sender: FDA-Public Use
  Company Number: CN-NAPPMUNDI-GBR-2024-0114060

PATIENT
  Age: 67 Year
  Sex: Male
  Weight: 62 kg

DRUGS (5)
  1. OXYCONTIN [Suspect]
     Active Substance: OXYCODONE HYDROCHLORIDE
     Indication: Analgesic therapy
     Dosage: 20 MILLIGRAM, BID
     Route: 048
     Dates: start: 20240117, end: 20240117
  2. OXYCONTIN [Suspect]
     Active Substance: OXYCODONE HYDROCHLORIDE
     Dosage: 30 MILLIGRAM, BID
     Route: 048
     Dates: start: 20240118, end: 20240119
  3. ESZOPICLONE [Concomitant]
     Active Substance: ESZOPICLONE
     Indication: Poor quality sleep
     Dosage: 3 MILLIGRAM, QN
     Route: 048
     Dates: start: 20240113, end: 20240119
  4. ACETAMINOPHEN\OXYCODONE HYDROCHLORIDE [Concomitant]
     Active Substance: ACETAMINOPHEN\OXYCODONE HYDROCHLORIDE
     Indication: Pain
     Dosage: 330 MILLIGRAM, Q6H(4 TIMES IN A DAY)
     Route: 048
     Dates: start: 20240115, end: 20240117
  5. MORPHINE HYDROCHLORIDE [Concomitant]
     Active Substance: MORPHINE HYDROCHLORIDE
     Indication: Breakthrough pain
     Dosage: 5 MILLIGRAM, BID
     Route: 058
     Dates: start: 20240117, end: 20240117

REACTIONS (2)
  - Mental disorder [Recovering/Resolving]
  - Dysuria [Recovered/Resolved]

NARRATIVE: CASE EVENT DATE: 20240117
